APPROVED DRUG PRODUCT: ORTHO CYCLEN-21
Active Ingredient: ETHINYL ESTRADIOL; NORGESTIMATE
Strength: 0.035MG;0.25MG **Federal Register determination that product was not discontinued or withdrawn for safety or effectiveness reasons**
Dosage Form/Route: TABLET;ORAL-21
Application: N019653 | Product #001
Applicant: JANSSEN PHARMACEUTICALS INC
Approved: Dec 29, 1989 | RLD: No | RS: No | Type: DISCN